FAERS Safety Report 11518475 (Version 8)
Quarter: 2016Q2

REPORT INFORMATION
  Report Type: Spontaneous
  Country: US (occurrence: US)
  Receive Date: 20150917
  Receipt Date: 20160408
  Transmission Date: 20160815
  Serious: Yes (Hospitalization, Disabling, Other)
  Sender: FDA-Public Use
  Company Number: US-009507513-1509USA009083

PATIENT
  Sex: Female
  Weight: 95.24 kg

DRUGS (7)
  1. VITAMINS (UNSPECIFIED) [Concomitant]
     Active Substance: VITAMINS
     Dosage: UNK, QD
     Dates: start: 2000
  2. FOSAMAX [Suspect]
     Active Substance: ALENDRONATE SODIUM
     Indication: OSTEOPENIA
     Dosage: 70 MG, UNK
     Route: 048
     Dates: start: 200610, end: 200704
  3. BONIVA [Suspect]
     Active Substance: IBANDRONATE SODIUM
     Indication: OSTEOPENIA
     Dosage: 150 MG, UNK
     Route: 065
     Dates: start: 200610, end: 201110
  4. FOSAMAX [Suspect]
     Active Substance: ALENDRONATE SODIUM
     Dosage: UNK
     Route: 048
     Dates: start: 2012, end: 2013
  5. ALENDRONATE SODIUM. [Suspect]
     Active Substance: ALENDRONATE SODIUM
     Indication: OSTEOPENIA
     Dosage: 70 MG, UNK
     Route: 065
     Dates: start: 20120416, end: 20130729
  6. SYNTHROID [Concomitant]
     Active Substance: LEVOTHYROXINE SODIUM
     Indication: HYPOTHYROIDISM
     Dosage: UNK, QD
     Dates: start: 2000
  7. HORMONES (UNSPECIFIED) [Concomitant]
     Active Substance: UNSPECIFIED INGREDIENT
     Dosage: UNK
     Dates: start: 2005, end: 2011

REACTIONS (38)
  - Limb asymmetry [Unknown]
  - Urticaria [Unknown]
  - Emotional distress [Not Recovered/Not Resolved]
  - Cardiomegaly [Unknown]
  - Migraine [Unknown]
  - Hyperlipidaemia [Unknown]
  - Gastrooesophageal reflux disease [Unknown]
  - Femur fracture [Not Recovered/Not Resolved]
  - Pain [Not Recovered/Not Resolved]
  - Osteoarthritis [Unknown]
  - Dyspnoea [Unknown]
  - Hypertonic bladder [Unknown]
  - Dermatitis contact [Unknown]
  - Diabetes mellitus [Unknown]
  - Haemoglobin decreased [Unknown]
  - Sleep apnoea syndrome [Unknown]
  - Incontinence [Unknown]
  - Chest pain [Unknown]
  - Impaired healing [Not Recovered/Not Resolved]
  - Red blood cell sedimentation rate increased [Unknown]
  - Haemorrhagic anaemia [Recovering/Resolving]
  - Mass [Unknown]
  - Anaemia [Unknown]
  - C-reactive protein increased [Unknown]
  - Hypertension [Unknown]
  - Haematocrit abnormal [Recovering/Resolving]
  - Urge incontinence [Unknown]
  - Drug hypersensitivity [Unknown]
  - Gait disturbance [Unknown]
  - Fracture nonunion [Not Recovered/Not Resolved]
  - Musculoskeletal disorder [Unknown]
  - Device breakage [Unknown]
  - Vitamin D deficiency [Unknown]
  - Haemoglobin abnormal [Recovering/Resolving]
  - Back pain [Unknown]
  - Memory impairment [Unknown]
  - Dyspepsia [Unknown]
  - Pain in extremity [Unknown]

NARRATIVE: CASE EVENT DATE: 2006
